FAERS Safety Report 23195901 (Version 5)
Quarter: 2024Q1

REPORT INFORMATION
  Report Type: Spontaneous
  Country: BE (occurrence: BE)
  Receive Date: 20231117
  Receipt Date: 20240122
  Transmission Date: 20240410
  Serious: Yes (Hospitalization, Other)
  Sender: FDA-Public Use
  Company Number: BE-002147023-NVSC2023BE242952

PATIENT
  Age: 85 Year
  Sex: Male

DRUGS (32)
  1. ENTRESTO [Suspect]
     Active Substance: SACUBITRIL\VALSARTAN
     Indication: Cardiac failure
     Dosage: 0.5 MG, BID
     Route: 048
     Dates: start: 20230522, end: 20231004
  2. ENTRESTO [Suspect]
     Active Substance: SACUBITRIL\VALSARTAN
     Indication: Product used for unknown indication
     Dosage: UNK, BID
     Route: 065
     Dates: end: 20231104
  3. SACUBITRIL\VALSARTAN [Suspect]
     Active Substance: SACUBITRIL\VALSARTAN
     Indication: Product used for unknown indication
     Dosage: 0.5 MG, BID
     Route: 065
  4. SIMVASTATIN [Suspect]
     Active Substance: SIMVASTATIN
     Indication: Hypercholesterolaemia
     Dosage: 20 MG, QD
     Route: 048
  5. TAMSULOSIN HYDROCHLORIDE [Suspect]
     Active Substance: TAMSULOSIN HYDROCHLORIDE
     Indication: Benign prostatic hyperplasia
     Dosage: 0.4 MG, QD
     Route: 048
     Dates: end: 20231004
  6. TAMSULOSIN HYDROCHLORIDE [Suspect]
     Active Substance: TAMSULOSIN HYDROCHLORIDE
     Dosage: 0.4 MG, QD
     Route: 048
     Dates: start: 20231006
  7. EDOXABAN TOSYLATE [Suspect]
     Active Substance: EDOXABAN TOSYLATE
     Indication: Thrombosis prophylaxis
     Dosage: 30 MG, QD
     Route: 048
     Dates: start: 20230315, end: 20230920
  8. EDOXABAN TOSYLATE [Suspect]
     Active Substance: EDOXABAN TOSYLATE
     Dosage: 30 MG, QD
     Route: 048
     Dates: end: 20230920
  9. EDOXABAN TOSYLATE [Suspect]
     Active Substance: EDOXABAN TOSYLATE
     Dosage: 30 MG, QD
     Route: 048
     Dates: start: 20230924
  10. EDOXABAN TOSYLATE [Suspect]
     Active Substance: EDOXABAN TOSYLATE
     Dosage: 30 MG, QD
     Route: 048
  11. DAPAGLIFLOZIN [Suspect]
     Active Substance: DAPAGLIFLOZIN
     Indication: Cardiac failure
     Dosage: 10 MG, QD
     Route: 048
     Dates: start: 20230315, end: 20231004
  12. DAPAGLIFLOZIN [Suspect]
     Active Substance: DAPAGLIFLOZIN
     Dosage: 10 MG, QD
     Route: 048
     Dates: end: 20231004
  13. DAPAGLIFLOZIN [Suspect]
     Active Substance: DAPAGLIFLOZIN
     Dosage: 10 MG, QD
     Route: 048
     Dates: start: 20231006
  14. DAPAGLIFLOZIN [Suspect]
     Active Substance: DAPAGLIFLOZIN
     Dosage: 10 MG, QD
     Route: 048
  15. BUMETANIDE [Suspect]
     Active Substance: BUMETANIDE
     Indication: Cardiac failure
     Dosage: 1 MG, QD
     Route: 048
     Dates: start: 20230927, end: 20231004
  16. BUMETANIDE [Suspect]
     Active Substance: BUMETANIDE
     Dosage: 1 MG, QOD EVERY 2 DAYS
     Route: 048
     Dates: start: 20231006
  17. PANTOPRAZOLE SODIUM [Suspect]
     Active Substance: PANTOPRAZOLE SODIUM
     Indication: Prophylaxis against gastrointestinal ulcer
     Dosage: 40 MG, QD
     Route: 048
  18. CORDARONE [Suspect]
     Active Substance: AMIODARONE HYDROCHLORIDE
     Indication: Arrhythmia prophylaxis
     Dosage: 200 MG, QD
     Route: 048
     Dates: start: 20230309
  19. CORDARONE [Suspect]
     Active Substance: AMIODARONE HYDROCHLORIDE
     Dosage: 200 MG, QD
     Route: 048
  20. BISOPROLOL [Suspect]
     Active Substance: BISOPROLOL\BISOPROLOL FUMARATE
     Indication: Hypertension
     Dosage: 2.5 MG, QD
     Route: 048
     Dates: start: 20230426
  21. SPIRONOLACTONE [Suspect]
     Active Substance: SPIRONOLACTONE
     Indication: Cardiac failure
     Dosage: 25MG, QD
     Route: 048
     Dates: end: 20230804
  22. SPIRONOLACTONE [Suspect]
     Active Substance: SPIRONOLACTONE
     Dosage: 25 MG, QD
     Route: 048
     Dates: end: 20231004
  23. SPIRONOLACTONE [Suspect]
     Active Substance: SPIRONOLACTONE
     Dosage: 25 MG, QD
     Route: 048
     Dates: start: 20231006
  24. DARBEPOETIN ALFA [Concomitant]
     Active Substance: DARBEPOETIN ALFA
     Indication: Product used for unknown indication
     Dosage: 40 UG, Q2W
     Route: 058
  25. SODIUM BICARBONATE [Concomitant]
     Active Substance: SODIUM BICARBONATE
     Indication: Prophylaxis
     Dosage: 1 G, TID
     Route: 048
     Dates: start: 20230920
  26. SODIUM BICARBONATE [Concomitant]
     Active Substance: SODIUM BICARBONATE
     Indication: Product used for unknown indication
     Dosage: 1 G
     Route: 048
     Dates: start: 20230920
  27. SODIUM BICARBONATE [Concomitant]
     Active Substance: SODIUM BICARBONATE
     Indication: Prophylaxis against dehydration
  28. 1-ALPHA LEO [Concomitant]
     Indication: Vitamin D deficiency
     Dosage: 0.25 UG, QD
     Route: 048
     Dates: start: 20230523
  29. 1-ALPHA LEO [Concomitant]
     Indication: Product used for unknown indication
     Dosage: 0.25 UG, QD
     Route: 048
  30. FENOTEROL [Concomitant]
     Active Substance: FENOTEROL
     Indication: Pneumonia
     Dosage: 2 DF, OTHER (2 DOSAGE FORM QID)
     Route: 065
     Dates: start: 20230924
  31. FENOTEROL [Concomitant]
     Active Substance: FENOTEROL
     Indication: Product used for unknown indication
     Dosage: 8 DF, QD (2 DF, OTHER (2 DOSAGE FORM QID))
     Route: 065
  32. ZOLPIDEM [Concomitant]
     Active Substance: ZOLPIDEM TARTRATE
     Indication: Product used for unknown indication
     Dosage: 10 MG, ONCE/SINGLE
     Route: 048

REACTIONS (15)
  - Atrioventricular block [Recovered/Resolved]
  - Cardiac failure [Recovered/Resolved]
  - Atrial fibrillation [Recovered/Resolved]
  - Dehydration [Recovered/Resolved]
  - Pneumonia [Recovered/Resolved]
  - Cardiac failure [Recovered/Resolved]
  - Pneumonia [Recovered/Resolved]
  - Cardiac failure [Recovered/Resolved]
  - Presyncope [Unknown]
  - Dizziness [Unknown]
  - Acute kidney injury [Recovered/Resolved]
  - Hypotension [Unknown]
  - Loss of consciousness [Unknown]
  - Acute kidney injury [Recovered/Resolved]
  - Wrong technique in product usage process [Unknown]

NARRATIVE: CASE EVENT DATE: 20230227
